FAERS Safety Report 9685821 (Version 1)
Quarter: 2013Q4

REPORT INFORMATION
  Report Type: Spontaneous
  Country: US (occurrence: US)
  Receive Date: 20131113
  Receipt Date: 20131113
  Transmission Date: 20140711
  Serious: No
  Sender: FDA-Public Use
  Company Number: US-PFIZER INC-2013322816

PATIENT
  Sex: Female

DRUGS (1)
  1. CHANTIX [Suspect]
     Indication: SMOKING CESSATION THERAPY
     Dosage: UNK
     Route: 048

REACTIONS (5)
  - Insomnia [Not Recovered/Not Resolved]
  - Nightmare [Unknown]
  - Abnormal dreams [Unknown]
  - Feeling of relaxation [Unknown]
  - Therapeutic response unexpected [Unknown]
